FAERS Safety Report 10350153 (Version 1)
Quarter: 2014Q3

REPORT INFORMATION
  Report Type: Spontaneous
  Country: US (occurrence: None)
  Receive Date: 20140728
  Receipt Date: 20140728
  Transmission Date: 20150326
  Serious: Yes (Other)
  Sender: FDA-Public Use
  Company Number: ADE14-026

PATIENT
  Age: 70 Year
  Sex: Female
  Weight: 89 kg

DRUGS (14)
  1. HEPARIN SODIUM. [Suspect]
     Active Substance: HEPARIN SODIUM
     Indication: CORONARY ARTERY BYPASS
     Dosage: NOT SPECIFIED IV
     Route: 042
     Dates: start: 20140707, end: 20140707
  2. ANCEF [Concomitant]
     Active Substance: CEFAZOLIN SODIUM
  3. FENTANYL. [Concomitant]
     Active Substance: FENTANYL
  4. MIDAZOLAM [Concomitant]
     Active Substance: MIDAZOLAM\MIDAZOLAM HYDROCHLORIDE
  5. ISO [Concomitant]
  6. ETOMIDATE. [Concomitant]
     Active Substance: ETOMIDATE
  7. ANTITHROMBIN [Concomitant]
  8. AMICAR [Concomitant]
     Active Substance: AMINOCAPROIC ACID
  9. PHENYLEPHRINE [Concomitant]
     Active Substance: PHENYLEPHRINE\PHENYLEPHRINE HYDROCHLORIDE
  10. SUCCINYLCHOLINE [Concomitant]
     Active Substance: SUCCINYLCHOLINE
  11. EPINEPHRINE. [Concomitant]
     Active Substance: EPINEPHRINE
  12. VECIRPMOI, [Concomitant]
  13. PRECEDEX [Concomitant]
     Active Substance: DEXMEDETOMIDINE HYDROCHLORIDE
  14. NITROGLYCERIN. [Concomitant]
     Active Substance: NITROGLYCERIN

REACTIONS (1)
  - Drug effect decreased [None]

NARRATIVE: CASE EVENT DATE: 20140707
